FAERS Safety Report 6021741-9 (Version None)
Quarter: 2008Q4

REPORT INFORMATION
  Report Type: 
  Country: None (occurrence: None)
  Receive Date: 20081229
  Receipt Date: 20081219
  Transmission Date: 20090506
  Serious: Yes (Disabling)
  Sender: FDA-Public Use
  Company Number: PHHY2008CH32553

PATIENT
  Age: 78 Year
  Sex: Female

DRUGS (11)
  1. ZOMETA [Suspect]
     Indication: METASTASES TO BONE
     Dosage: 4 MG/MONTH
     Route: 042
     Dates: start: 20000101, end: 20080101
  2. LANSOPRAZOLE [Concomitant]
     Dosage: UNK
  3. LORASIFAR [Concomitant]
     Dosage: UNK
  4. ALDACTONE [Concomitant]
     Dosage: UNK
  5. MOGADON [Concomitant]
     Dosage: UNK
  6. PAROXETINE [Concomitant]
     Dosage: UNK
  7. PRIMPERAN TAB [Concomitant]
     Dosage: UNK
  8. DURAGESIC-100 [Concomitant]
     Dosage: UNK
  9. HALDOL [Concomitant]
     Dosage: UNK
  10. XANAX [Concomitant]
     Dosage: UNK
  11. MORPHINE [Concomitant]
     Dosage: UNK

REACTIONS (3)
  - BONE DISORDER [None]
  - OSTEONECROSIS [None]
  - TOOTH LOSS [None]
